FAERS Safety Report 7514164-4 (Version None)
Quarter: 2011Q2

REPORT INFORMATION
  Report Type: 
  Country: None (occurrence: None)
  Receive Date: 20110531
  Receipt Date: 20110526
  Transmission Date: 20111010
  Serious: Yes (Other)
  Sender: FDA-Public Use
  Company Number: AU-SANOFI-AVENTIS-2011SA030095

PATIENT
  Age: 64 Year
  Sex: Female

DRUGS (11)
  1. DIAZEPAM [Concomitant]
  2. CORONARY VASODILATORS [Concomitant]
     Route: 065
  3. PLAVIX [Concomitant]
     Route: 065
  4. FUROSEMIDE [Concomitant]
  5. PLAQUENIL [Suspect]
     Indication: RHEUMATOID ARTHRITIS
     Route: 065
     Dates: start: 20100401
  6. METHOTREXATE [Concomitant]
     Route: 065
  7. MICARDIS [Concomitant]
     Route: 065
  8. ONDANSETRON [Concomitant]
  9. FOLIC ACID [Concomitant]
  10. PANAFCORT [Concomitant]
     Route: 065
  11. SIMVASTATIN [Concomitant]
     Route: 065

REACTIONS (1)
  - DYSPNOEA [None]
